FAERS Safety Report 6445698-1 (Version None)
Quarter: 2009Q4

REPORT INFORMATION
  Report Type: 
  Country: None (occurrence: None)
  Receive Date: 20091118
  Receipt Date: 20091118
  Transmission Date: 20100525
  Serious: Yes (Hospitalization)
  Sender: FDA-Public Use
  Company Number: None

PATIENT
  Age: 77 Year
  Sex: Male
  Weight: 93 kg

DRUGS (1)
  1. IBUPROFEN [Suspect]
     Indication: PAIN
     Dosage: 600 MG PRN PO
     Route: 048
     Dates: start: 20060201, end: 20091101

REACTIONS (3)
  - GASTRIC HAEMORRHAGE [None]
  - GASTRITIS [None]
  - MELAENA [None]
